FAERS Safety Report 5581774-3 (Version None)
Quarter: 2008Q1

REPORT INFORMATION
  Report Type: 
  Country: None (occurrence: None)
  Receive Date: 20080104
  Receipt Date: 20071221
  Transmission Date: 20080703
  Serious: Yes (Congenital Anomaly)
  Sender: FDA-Public Use
  Company Number: DE-MERCK-0311DEU00141B1

PATIENT
  Sex: Female
  Weight: 2 kg

DRUGS (1)
  1. COZAAR [Suspect]
     Indication: HYPERTENSION
     Route: 064

REACTIONS (3)
  - BONE FORMATION DECREASED [None]
  - CONGENITAL RENAL CYST [None]
  - RENAL DISORDER [None]
